FAERS Safety Report 9941398 (Version 2)
Quarter: 2014Q1

REPORT INFORMATION
  Report Type: Report from Study
  Country: US (occurrence: US)
  Receive Date: 20140303
  Receipt Date: 20140303
  Transmission Date: 20141002
  Serious: No
  Sender: FDA-Public Use
  Company Number: US-ABBVIE-12P-163-1021539-00

PATIENT
  Age: 53 Year
  Sex: Female

DRUGS (7)
  1. HUMIRA [Suspect]
     Indication: CROHN^S DISEASE
     Route: 058
     Dates: start: 20121103, end: 20121103
  2. HUMIRA [Suspect]
     Route: 058
     Dates: start: 20121117, end: 20121117
  3. HUMIRA [Suspect]
     Route: 058
     Dates: start: 20121207, end: 20121207
  4. HUMIRA [Suspect]
     Route: 058
  5. PENTASA [Concomitant]
     Indication: PRODUCT USED FOR UNKNOWN INDICATION
     Dosage: 8 PILLS DAILY
     Dates: start: 1997
  6. ESTRADIOL [Concomitant]
     Indication: PRODUCT USED FOR UNKNOWN INDICATION
     Dosage: 2MG DAILY
  7. ZOLOFT [Concomitant]
     Indication: PRODUCT USED FOR UNKNOWN INDICATION
     Dosage: 50MG DAILY

REACTIONS (6)
  - Vitamin D decreased [Unknown]
  - Incorrect drug administration duration [Unknown]
  - Hypersensitivity [Not Recovered/Not Resolved]
  - Injection site haemorrhage [Not Recovered/Not Resolved]
  - Rash [Not Recovered/Not Resolved]
  - Headache [Recovered/Resolved]
